FAERS Safety Report 7950034-5 (Version None)
Quarter: 2011Q4

REPORT INFORMATION
  Report Type: 
  Country: None (occurrence: None)
  Receive Date: 20111130
  Receipt Date: 20111128
  Transmission Date: 20120403
  Serious: Yes (Other)
  Sender: FDA-Public Use
  Company Number: US-PFIZER INC-2011255400

PATIENT
  Sex: Female
  Weight: 72.562 kg

DRUGS (21)
  1. NARDIL [Suspect]
     Indication: DEPRESSION
     Dosage: 30 MG, 2X/DAY
     Dates: start: 20101228
  2. PAMELOR [Suspect]
     Indication: DEPRESSION
     Dosage: UNK
  3. ZOLOFT [Suspect]
     Indication: DEPRESSION
     Dosage: UNK
  4. PRISTIQ [Suspect]
     Indication: ANXIETY
  5. WELLBUTRIN [Suspect]
     Indication: ANXIETY
  6. ABILIFY [Suspect]
     Indication: ANXIETY
  7. PROZAC [Suspect]
     Indication: ANXIETY
  8. NARDIL [Suspect]
     Indication: ANXIETY
  9. WELLBUTRIN [Suspect]
     Indication: DEPRESSION
     Dosage: UNK
  10. PAXIL [Suspect]
     Indication: DEPRESSION
     Dosage: UNK
  11. PAXIL [Suspect]
     Indication: ANXIETY
  12. PAMELOR [Suspect]
     Indication: ANXIETY
  13. ABILIFY [Suspect]
     Indication: DEPRESSION
     Dosage: UNK
  14. AMBIEN [Concomitant]
     Indication: SLEEP DISORDER
     Dosage: 10 MG, DAILY
  15. CYMBALTA [Suspect]
     Indication: ANXIETY
  16. REMERON [Suspect]
     Indication: DEPRESSION
     Dosage: UNK
  17. ZOLOFT [Suspect]
     Indication: ANXIETY
  18. PRISTIQ [Suspect]
     Indication: DEPRESSION
     Dosage: UNK
  19. CYMBALTA [Suspect]
     Indication: DEPRESSION
     Dosage: UNK
  20. REMERON [Suspect]
     Indication: ANXIETY
  21. PROZAC [Suspect]
     Indication: DEPRESSION
     Dosage: UNK

REACTIONS (4)
  - LIP NEOPLASM [None]
  - DRUG INEFFECTIVE [None]
  - THROMBOSIS [None]
  - OEDEMA PERIPHERAL [None]
